FAERS Safety Report 23104614 (Version 1)
Quarter: 2023Q4

REPORT INFORMATION
  Report Type: Spontaneous
  Country: FR (occurrence: FR)
  Receive Date: 20231025
  Receipt Date: 20231025
  Transmission Date: 20240109
  Serious: Yes (Hospitalization)
  Sender: FDA-Public Use
  Company Number: None

PATIENT
  Sex: Female
  Weight: 1.27 kg

DRUGS (6)
  1. ASPIRIN [Suspect]
     Active Substance: ASPIRIN
     Indication: Prophylaxis
     Dosage: 100 MG
     Route: 064
  2. CELLCEPT [Suspect]
     Active Substance: MYCOPHENOLATE MOFETIL
     Indication: Heart transplant
     Dosage: 500MG 2XJ
     Route: 064
  3. PREDNISONE [Suspect]
     Active Substance: PREDNISONE
     Indication: Heart transplant
     Dosage: UNK
     Route: 064
  4. IRBESARTAN [Suspect]
     Active Substance: IRBESARTAN
     Indication: Heart transplant
     Dosage: 75 X2/J
     Route: 048
  5. LOVENOX [Suspect]
     Active Substance: ENOXAPARIN SODIUM
     Indication: Heart transplant
     Dosage: 4000 DF
     Route: 064
  6. TACROLIMUS [Suspect]
     Active Substance: TACROLIMUS
     Indication: Heart disease congenital
     Dosage: 2.5MG X2/J ROUTE OF ADMIN (FREE TEXT): TRANSPLACENTAIRE
     Route: 065

REACTIONS (1)
  - Premature delivery [Recovered/Resolved]

NARRATIVE: CASE EVENT DATE: 20230227
